FAERS Safety Report 12422762 (Version 2)
Quarter: 2016Q3

REPORT INFORMATION
  Report Type: Report from Study
  Country: MX (occurrence: MX)
  Receive Date: 20160601
  Receipt Date: 20160726
  Transmission Date: 20161109
  Serious: Yes (Death)
  Sender: FDA-Public Use
  Company Number: PHHY2016MX075300

PATIENT
  Sex: Male

DRUGS (1)
  1. EXELON PATCH [Suspect]
     Active Substance: RIVASTIGMINE
     Indication: MEMORY IMPAIRMENT
     Dosage: PATCH 5 (CM2), QD
     Route: 062
     Dates: end: 20151212

REACTIONS (1)
  - Pneumonia [Fatal]
